FAERS Safety Report 26088005 (Version 1)
Quarter: 2025Q4

REPORT INFORMATION
  Report Type: Spontaneous
  Country: US (occurrence: US)
  Receive Date: 20251125
  Receipt Date: 20251125
  Transmission Date: 20260117
  Serious: No
  Sender: AMGEN
  Company Number: US-AMGEN-USASP2025232128

PATIENT
  Age: 50 Year
  Sex: Male

DRUGS (4)
  1. OTEZLA [Suspect]
     Active Substance: APREMILAST
     Indication: Psoriasis
     Dosage: UNK (TWO TITRATION PERIOD)
     Route: 065
  2. OTEZLA [Suspect]
     Active Substance: APREMILAST
     Indication: Psoriatic arthropathy
     Dosage: 30 MILLIGRAM, BID
     Route: 065
  3. OTEZLA [Suspect]
     Active Substance: APREMILAST
     Indication: Cutaneous symptom
     Dosage: UNK (LOWER DOSE)
     Route: 065
  4. SIMPONI [Concomitant]
     Active Substance: GOLIMUMAB
     Dosage: UNK
     Route: 065

REACTIONS (2)
  - Migraine [Recovered/Resolved]
  - Tendonitis [Recovered/Resolved]
